FAERS Safety Report 21338550 (Version 1)
Quarter: 2022Q3

REPORT INFORMATION
  Report Type: Spontaneous
  Country: FR (occurrence: FR)
  Receive Date: 20220915
  Receipt Date: 20220915
  Transmission Date: 20221026
  Serious: Yes (Death)
  Sender: FDA-Public Use
  Company Number: FR-TEVA-2022-FR-2072820

PATIENT
  Sex: Male

DRUGS (4)
  1. ARIPIPRAZOLE [Interacting]
     Active Substance: ARIPIPRAZOLE
     Indication: Schizophrenia
     Dosage: 30 MILLIGRAM DAILY;
     Route: 065
  2. ARIPIPRAZOLE [Interacting]
     Active Substance: ARIPIPRAZOLE
     Indication: Suicide attempt
     Dosage: 225MG OF ARIPIPRAZOLE DURING THE 3 DAYS BEFORE HIS SUICIDE
     Route: 065
  3. RISPERIDONE [Interacting]
     Active Substance: RISPERIDONE
     Indication: Schizophrenia
     Dosage: 6 MILLIGRAM DAILY; INITIAL DOSAGE NOT STATED; LATER INCREASED TO 6 MG/DAY
     Route: 065
  4. RISPERIDONE [Interacting]
     Active Substance: RISPERIDONE
     Dosage: 12 MILLIGRAM DAILY;
     Route: 065

REACTIONS (5)
  - Paradoxical drug reaction [Fatal]
  - Psychotic disorder [Fatal]
  - Completed suicide [Fatal]
  - Intentional overdose [Fatal]
  - Drug interaction [Fatal]
